FAERS Safety Report 14442003 (Version 4)
Quarter: 2018Q2

REPORT INFORMATION
  Report Type: Spontaneous
  Country: ES (occurrence: ES)
  Receive Date: 20180125
  Receipt Date: 20180501
  Transmission Date: 20180711
  Serious: Yes (Hospitalization, Other)
  Sender: FDA-Public Use
  Company Number: ES-ALLERGAN-1803966US

PATIENT
  Age: 57 Year
  Sex: Female

DRUGS (3)
  1. MESALAZINE UNK [Suspect]
     Active Substance: MESALAMINE
     Indication: CROHN^S DISEASE
     Dosage: 3 G, QD
     Route: 048
  2. MESALAZINE UNK [Suspect]
     Active Substance: MESALAMINE
     Dosage: 500 MG, UNK
     Route: 048
  3. CELECOXIB. [Concomitant]
     Active Substance: CELECOXIB
     Indication: SPONDYLOARTHROPATHY
     Route: 065

REACTIONS (6)
  - Hepatotoxicity [Recovering/Resolving]
  - Dyspnoea [Recovering/Resolving]
  - Hypotension [Recovering/Resolving]
  - Chest pain [Recovering/Resolving]
  - Pyrexia [Recovered/Resolved]
  - Off label use [Unknown]
